FAERS Safety Report 25543272 (Version 1)
Quarter: 2025Q3

REPORT INFORMATION
  Report Type: Spontaneous
  Country: SA (occurrence: SA)
  Receive Date: 20250711
  Receipt Date: 20250711
  Transmission Date: 20251021
  Serious: Yes (Other)
  Sender: NEXUS PHARMACEUTICALS
  Company Number: SA-Nexus Pharma-000430

PATIENT
  Age: 81 Year
  Sex: Male

DRUGS (1)
  1. METHYLENE BLUE [Suspect]
     Active Substance: METHYLENE BLUE
     Indication: Product used for unknown indication
     Route: 031

REACTIONS (1)
  - Toxic anterior segment syndrome [Recovering/Resolving]
